FAERS Safety Report 5807803-7 (Version None)
Quarter: 2008Q3

REPORT INFORMATION
  Report Type: 
  Country: None (occurrence: None)
  Receive Date: 20080711
  Receipt Date: 20080623
  Transmission Date: 20090109
  Serious: No
  Sender: FDA-Public Use
  Company Number: US-BOEHRINGER INGELHEIM GMBH, GERMANY-2007-BP-26009BP

PATIENT
  Sex: Male

DRUGS (11)
  1. SPIRIVA [Suspect]
     Indication: CHRONIC OBSTRUCTIVE PULMONARY DISEASE
     Route: 055
     Dates: start: 20070101, end: 20070101
  2. THEOPHYLLINE [Concomitant]
  3. THEOPHYLLINE [Concomitant]
  4. PRILOSEC [Concomitant]
  5. ZOCOR [Concomitant]
  6. AVANDIA [Concomitant]
  7. LORPESSOR [Concomitant]
  8. GLIPIZIDE [Concomitant]
  9. THEO-DUR [Concomitant]
  10. COMBIVENT [Concomitant]
     Indication: DYSPNOEA
     Route: 055
  11. ALBUTEROL W/IPTRATROPIUM [Concomitant]
     Route: 055

REACTIONS (3)
  - ADVERSE DRUG REACTION [None]
  - RASH [None]
  - URTICARIA [None]
